FAERS Safety Report 5595320-1 (Version None)
Quarter: 2008Q1

REPORT INFORMATION
  Report Type: 
  Country: None (occurrence: None)
  Receive Date: 20080117
  Receipt Date: 20080111
  Transmission Date: 20080703
  Serious: Yes (Other)
  Sender: FDA-Public Use
  Company Number: US-GILEAD-2007-0013069

PATIENT
  Sex: Male

DRUGS (4)
  1. LETAIRIS [Suspect]
     Indication: PULMONARY HYPERTENSION
     Route: 048
     Dates: start: 20070731, end: 20070825
  2. COUMADIN [Concomitant]
     Indication: PULMONARY EMBOLISM
     Dates: start: 20070606
  3. COUMADIN [Concomitant]
     Indication: PNEUMOCYSTIS JIROVECI PNEUMONIA
  4. LASIX [Concomitant]
     Indication: OEDEMA PERIPHERAL
     Dates: start: 20070606

REACTIONS (8)
  - DYSPNOEA [None]
  - FATIGUE [None]
  - HYPOTENSION [None]
  - JOINT SWELLING [None]
  - NASOPHARYNGITIS [None]
  - PNEUMONIA [None]
  - PYREXIA [None]
  - SYNCOPE [None]
